FAERS Safety Report 7047082 (Version 8)
Quarter: 2012Q4

REPORT INFORMATION
  Report Type: Report from Study
  Country: JP (occurrence: JP)
  Receive Date: 20090710
  Receipt Date: 20121102
  Transmission Date: 20130627
  Serious: Yes (Hospitalization, Other)
  Sender: FDA-Public Use
  Company Number: PHHY2009JP25297

PATIENT
  Age: 77 Year
  Sex: Male

DRUGS (10)
  1. AMN107 [Suspect]
     Indication: CHRONIC MYELOID LEUKAEMIA
     Dosage: 800 mg, QD
     Route: 048
     Dates: start: 20090430, end: 20090521
  2. AMN107 [Suspect]
     Dosage: 400 mg, QD
     Route: 048
     Dates: start: 20090522, end: 20090813
  3. AMN107 [Suspect]
     Dosage: 800 mg, daily
     Route: 048
     Dates: start: 20090814, end: 20090910
  4. NAUZELIN [Concomitant]
     Dosage: 30 mg, UNK
     Route: 048
  5. MENESIT [Concomitant]
     Dosage: 300 mg, UNK
     Route: 048
  6. LASIX [Concomitant]
     Dosage: 20 mg, UNK
     Route: 048
  7. JUSO [Concomitant]
     Dosage: 1000 mg, UNK
     Route: 048
  8. TAKEPRON [Concomitant]
     Dosage: 15 mg, UNK
     Route: 048
  9. URSO [Concomitant]
     Dosage: 600 mg, UNK
     Route: 048
  10. ALOSENN [Concomitant]
     Dosage: 0.5 g, UNK
     Route: 048

REACTIONS (8)
  - Renal failure chronic [Not Recovered/Not Resolved]
  - Blood urea increased [Unknown]
  - Blood creatinine increased [Unknown]
  - Hyperuricaemia [Not Recovered/Not Resolved]
  - Aspartate aminotransferase increased [Unknown]
  - Electrocardiogram QT prolonged [Unknown]
  - Oedema [Not Recovered/Not Resolved]
  - Nausea [Recovered/Resolved]
